FAERS Safety Report 5292270-5 (Version None)
Quarter: 2007Q2

REPORT INFORMATION
  Report Type: 
  Country: None (occurrence: None)
  Receive Date: 20070410
  Receipt Date: 20070402
  Transmission Date: 20071010
  Serious: Yes (Hospitalization)
  Sender: FDA-Public Use
  Company Number: DE-SANOFI-SYNTHELABO-F04200700023

PATIENT
  Sex: Female

DRUGS (4)
  1. TAXOTERE [Suspect]
     Indication: GASTRIC CANCER
     Route: 041
     Dates: start: 20061218, end: 20061218
  2. FOLINIC ACID [Suspect]
     Indication: GASTRIC CANCER
     Route: 041
     Dates: start: 20061218, end: 20061218
  3. FLUOROURACIL [Suspect]
     Indication: GASTRIC CANCER
     Route: 041
     Dates: start: 20061218, end: 20061218
  4. ELOXATIN [Suspect]
     Indication: GASTRIC CANCER
     Route: 041
     Dates: start: 20061218, end: 20061218

REACTIONS (4)
  - CONDITION AGGRAVATED [None]
  - COUGH [None]
  - DYSPNOEA [None]
  - PLEURAL EFFUSION [None]
